FAERS Safety Report 17335119 (Version 2)
Quarter: 2020Q1

REPORT INFORMATION
  Report Type: Spontaneous
  Country: DK (occurrence: DK)
  Receive Date: 20200128
  Receipt Date: 20200214
  Transmission Date: 20200409
  Serious: No
  Sender: FDA-Public Use
  Company Number: DK-ALK-ABELLO A/S-2020AA000159

PATIENT

DRUGS (2)
  1. ACARIZAX [Suspect]
     Active Substance: DERMATOPHAGOIDES FARINAE\DERMATOPHAGOIDES PTERONYSSINUS
     Indication: PRODUCT USED FOR UNKNOWN INDICATION
     Dosage: 12 SQ-HDM
     Route: 060
     Dates: start: 20200113
  2. GRAZAX [Concomitant]
     Active Substance: PHLEUM PRATENSE POLLEN
     Indication: PRODUCT USED FOR UNKNOWN INDICATION
     Dosage: UNK
     Route: 060
     Dates: start: 2019

REACTIONS (7)
  - Malaise [Recovered/Resolved]
  - Oesophageal discomfort [Recovered/Resolved]
  - Pharyngeal swelling [Recovered/Resolved]
  - Dysphonia [Recovered/Resolved]
  - Mouth swelling [Recovered/Resolved]
  - Dizziness [Recovered/Resolved]
  - Dysphagia [Recovered/Resolved]

NARRATIVE: CASE EVENT DATE: 20200116
